FAERS Safety Report 8878994 (Version 1)
Quarter: 2012Q4

REPORT INFORMATION
  Report Type: 
  Country: US (occurrence: US)
  Receive Date: 20121026
  Receipt Date: 20121026
  Transmission Date: 20130627
  Serious: No
  Sender: FDA-Public Use
  Company Number: US-ASTRAZENECA-2011SE34971

PATIENT
  Age: 42 Year
  Sex: Female

DRUGS (8)
  1. CRESTOR [Suspect]
     Indication: BLOOD CHOLESTEROL ABNORMAL
     Dosage: 10 MG HALF TABLET EVERY OTHER DAY
     Route: 048
     Dates: start: 201105
  2. CRESTOR [Suspect]
     Indication: BLOOD CHOLESTEROL ABNORMAL
     Dosage: 10 mg HALF TABLET EVERY DAY
     Route: 048
  3. CRESTOR [Suspect]
     Indication: BLOOD CHOLESTEROL ABNORMAL
     Route: 048
     Dates: end: 20110608
  4. CRESTOR [Suspect]
     Indication: BLOOD CHOLESTEROL ABNORMAL
     Dosage: 5 MG 1 EVERY OTHER DAY
     Route: 048
  5. BENADRYL [Concomitant]
  6. LISINOPRIL [Concomitant]
  7. TEMAZEPAM [Concomitant]
     Indication: INSOMNIA
  8. PROZAC [Concomitant]

REACTIONS (2)
  - Hypoaesthesia [Unknown]
  - Pruritus generalised [Unknown]
